FAERS Safety Report 16094272 (Version 1)
Quarter: 2019Q1

REPORT INFORMATION
  Report Type: Spontaneous
  Country: IT (occurrence: IT)
  Receive Date: 20190320
  Receipt Date: 20190320
  Transmission Date: 20190418
  Serious: Yes (Hospitalization)
  Sender: FDA-Public Use
  Company Number: IT-ACCORD-114424

PATIENT
  Age: 52 Year
  Sex: Female

DRUGS (7)
  1. LAROXYL [Suspect]
     Active Substance: AMITRIPTYLINE HYDROCHLORIDE
     Dosage: STRENGTH:10MG
     Route: 048
     Dates: start: 20181006, end: 20181006
  2. LANSOX [Concomitant]
     Active Substance: LANSOPRAZOLE
  3. LAMICTAL [Suspect]
     Active Substance: LAMOTRIGINE
     Dosage: STRENGTH:100 MG CHEWABLE TABLETS / DISPERSIBLE
     Route: 048
     Dates: start: 20181006, end: 20181006
  4. CLOZAPINE. [Suspect]
     Active Substance: CLOZAPINE
     Route: 048
     Dates: start: 20181006, end: 20181006
  5. TRITTICO [Suspect]
     Active Substance: TRAZODONE HYDROCHLORIDE
     Dosage: STRENGTH:100MG
     Route: 048
     Dates: start: 20181006, end: 20181006
  6. LATUDA [Suspect]
     Active Substance: LURASIDONE HYDROCHLORIDE
     Dosage: STRENGTH:74MG
     Route: 048
     Dates: start: 20181006, end: 20181006
  7. HALDOL [Suspect]
     Active Substance: HALOPERIDOL
     Route: 048
     Dates: start: 20181006, end: 20181006

REACTIONS (3)
  - Drug abuse [Unknown]
  - Sopor [Unknown]
  - Agitation [Unknown]

NARRATIVE: CASE EVENT DATE: 20181006
